FAERS Safety Report 21397441 (Version 3)
Quarter: 2023Q2

REPORT INFORMATION
  Report Type: Spontaneous
  Country: JP (occurrence: JP)
  Receive Date: 20220930
  Receipt Date: 20230503
  Transmission Date: 20230722
  Serious: Yes (Death, Other)
  Sender: FDA-Public Use
  Company Number: JP-SERVIER-S22009853

PATIENT
  Age: 72 Year
  Sex: Female

DRUGS (2)
  1. ONIVYDE [Suspect]
     Active Substance: IRINOTECAN HYDROCHLORIDE
     Indication: Pancreatic carcinoma
     Dosage: UNK
     Route: 065
  2. FLUOROURACIL [Concomitant]
     Active Substance: FLUOROURACIL
     Indication: Pancreatic carcinoma

REACTIONS (2)
  - Malignant neoplasm progression [Fatal]
  - Spinal compression fracture [Fatal]

NARRATIVE: CASE EVENT DATE: 20220101
